FAERS Safety Report 25527871 (Version 1)
Quarter: 2025Q3

REPORT INFORMATION
  Report Type: Spontaneous
  Country: CN (occurrence: CN)
  Receive Date: 20250708
  Receipt Date: 20250708
  Transmission Date: 20251020
  Serious: Yes (Hospitalization)
  Sender: GE HEALTHCARE
  Company Number: None

PATIENT
  Age: 78 Year
  Sex: Male
  Weight: 70 kg

DRUGS (1)
  1. OMNIPAQUE [Suspect]
     Active Substance: IOHEXOL
     Indication: Computerised tomogram heart
     Route: 042
     Dates: start: 20250425, end: 20250425

REACTIONS (9)
  - Discoloured vomit [Recovering/Resolving]
  - Cold sweat [Recovered/Resolved]
  - Coma [Recovering/Resolving]
  - Unresponsive to stimuli [Recovered/Resolved]
  - Syncope [Recovering/Resolving]
  - Tremor [Recovering/Resolving]
  - Peripheral coldness [Recovered/Resolved]
  - Hyperhidrosis [Recovered/Resolved]
  - Dizziness [Recovered/Resolved]

NARRATIVE: CASE EVENT DATE: 20250425
